FAERS Safety Report 23055742 (Version 2)
Quarter: 2023Q4

REPORT INFORMATION
  Report Type: Report from Study
  Country: DE (occurrence: DE)
  Receive Date: 20231011
  Receipt Date: 20231228
  Transmission Date: 20240110
  Serious: No
  Sender: FDA-Public Use
  Company Number: DE-SUN PHARMACEUTICAL INDUSTRIES LTD-2023RR-412220

PATIENT
  Sex: Male

DRUGS (1)
  1. TILDRAKIZUMAB [Suspect]
     Active Substance: TILDRAKIZUMAB
     Indication: Product used for unknown indication
     Dosage: 100 MILLIGRAM, UNK
     Route: 065
     Dates: start: 20220914

REACTIONS (1)
  - Tinea versicolour [Unknown]

NARRATIVE: CASE EVENT DATE: 20230920
